FAERS Safety Report 16106475 (Version 1)
Quarter: 2019Q1

REPORT INFORMATION
  Report Type: Spontaneous
  Country: DE (occurrence: DE)
  Receive Date: 20190322
  Receipt Date: 20190322
  Transmission Date: 20190418
  Serious: Yes (Hospitalization)
  Sender: FDA-Public Use
  Company Number: DE-TEVA-2019-DE-1027457

PATIENT
  Age: 3 Year
  Sex: Female
  Weight: 11 kg

DRUGS (3)
  1. URSOFALK 250MG/5ML SUSPENSION [Concomitant]
     Indication: CONGENITAL ABSENCE OF BILE DUCTS
     Dosage: 100 MILLIGRAM DAILY;
     Route: 048
     Dates: start: 20151029
  2. MAGNESIOCARD [Concomitant]
     Active Substance: MAGNESIUM ASPARTATE HYDROCHLORIDE
     Indication: BLOOD MAGNESIUM INCREASED
     Dosage: 5 MILLIMOL DAILY;
     Route: 048
     Dates: start: 20160414
  3. CICLOSPORIN A [Suspect]
     Active Substance: CYCLOSPORINE
     Indication: IMMUNOSUPPRESSION
     Dosage: 56 MILLIGRAM DAILY;
     Route: 048
     Dates: start: 20160414

REACTIONS (7)
  - Gastroenteritis [Recovered/Resolved]
  - Micturition frequency decreased [Recovered/Resolved]
  - Fluid intake reduced [Recovered/Resolved]
  - Hypophagia [Recovered/Resolved]
  - Vomiting [Recovered/Resolved]
  - Metabolic acidosis [Recovered/Resolved]
  - Pyrexia [Recovered/Resolved]

NARRATIVE: CASE EVENT DATE: 20181024
